FAERS Safety Report 25177490 (Version 1)
Quarter: 2025Q2

REPORT INFORMATION
  Report Type: Spontaneous
  Country: GR (occurrence: GR)
  Receive Date: 20250409
  Receipt Date: 20250409
  Transmission Date: 20250716
  Serious: Yes (Life-Threatening, Hospitalization)
  Sender: CHEPLAPHARM
  Company Number: None

PATIENT
  Age: 62 Year
  Sex: Male

DRUGS (2)
  1. OLANZAPINE PAMOATE [Suspect]
     Active Substance: OLANZAPINE PAMOATE
     Indication: Schizophrenia
     Route: 030
     Dates: start: 20220708, end: 20250218
  2. Tavor [Concomitant]
     Indication: Schizophrenia
     Dosage: 1 TABLET AT NIGHT?DAILY DOSE: 2.5 MILLIGRAM
     Dates: start: 20240123, end: 20250218

REACTIONS (4)
  - Ischaemic stroke [Unknown]
  - Dysarthria [Unknown]
  - Dizziness [Unknown]
  - Gait disturbance [Unknown]

NARRATIVE: CASE EVENT DATE: 20220708
